FAERS Safety Report 5158037-3 (Version None)
Quarter: 2006Q4

REPORT INFORMATION
  Report Type: 
  Country: None (occurrence: None)
  Receive Date: 20061116
  Receipt Date: 20061103
  Transmission Date: 20070319
  Serious: Yes (Hospitalization)
  Sender: FDA-Public Use
  Company Number: 2006136537

PATIENT
  Age: 75 Year
  Sex: Female

DRUGS (11)
  1. LYRICA [Suspect]
     Indication: POST HERPETIC NEURALGIA
     Dosage: 150 MG (75 MG, 2 IN 1 D), ORAL
     Route: 048
     Dates: start: 20060919
  2. AEROBEC                      (BECLOMETASONE DIPROPIONATE) [Concomitant]
  3. ASPIRIN [Concomitant]
  4. ATROVENT [Concomitant]
  5. FUROSEMIDE [Concomitant]
  6. LOSARTAN POTASSIUM [Concomitant]
  7. QUININE SULFATE [Concomitant]
  8. SALBUTAMOL    (SALBUTAMOL) [Concomitant]
  9. TRAMADOL HCL [Concomitant]
  10. ZOPICLONE              (ZOPICLONE) [Concomitant]
  11. SPIRONOLACTONE [Concomitant]

REACTIONS (6)
  - ASTHENIA [None]
  - DIPLOPIA [None]
  - FALL [None]
  - HALLUCINATION [None]
  - TREMOR [None]
  - WHITE BLOOD CELL COUNT INCREASED [None]
